FAERS Safety Report 17011156 (Version 2)
Quarter: 2020Q2

REPORT INFORMATION
  Report Type: Report from Study
  Country: US (occurrence: US)
  Receive Date: 20191108
  Receipt Date: 20200421
  Transmission Date: 20200713
  Serious: Yes (Hospitalization)
  Sender: FDA-Public Use
  Company Number: US-ROCHE-2456643

PATIENT
  Age: 49 Year
  Sex: Male

DRUGS (1)
  1. OCREVUS [Suspect]
     Active Substance: OCRELIZUMAB
     Indication: RELAPSING MULTIPLE SCLEROSIS
     Dosage: 600 MG EVERY 6 MONTH
     Route: 042
     Dates: start: 20180910

REACTIONS (3)
  - Malaise [Not Recovered/Not Resolved]
  - Memory impairment [Unknown]
  - Meningitis viral [Recovered/Resolved]

NARRATIVE: CASE EVENT DATE: 20190930
